FAERS Safety Report 23667883 (Version 1)
Quarter: 2024Q1

REPORT INFORMATION
  Report Type: Spontaneous
  Country: US (occurrence: None)
  Receive Date: 20240322
  Receipt Date: 20240322
  Transmission Date: 20240409
  Serious: No
  Sender: FDA-Public Use
  Company Number: None

PATIENT
  Age: 35 Year
  Sex: Female

DRUGS (2)
  1. COSENTYX [Suspect]
     Active Substance: SECUKINUMAB
     Indication: Hidradenitis
     Dosage: OTHER FREQUENCY : EVERY WEEK/ 5 WEEK;?
     Route: 058
     Dates: start: 20240301
  2. HUMIRA PEN [Concomitant]

REACTIONS (3)
  - Swelling face [None]
  - Dysphagia [None]
  - Product formulation issue [None]

NARRATIVE: CASE EVENT DATE: 20240321
